FAERS Safety Report 6960814-0 (Version None)
Quarter: 2010Q3

REPORT INFORMATION
  Report Type: 
  Country: None (occurrence: None)
  Receive Date: 20100901
  Receipt Date: 20100824
  Transmission Date: 20110219
  Serious: Yes (Hospitalization)
  Sender: FDA-Public Use
  Company Number: US-ROCHE-723744

PATIENT
  Age: 43 Year
  Sex: Female
  Weight: 75.8 kg

DRUGS (3)
  1. BEVACIZUMAB [Suspect]
     Route: 065
     Dates: start: 20100713, end: 20100803
  2. TRASTUZUMAB [Suspect]
     Route: 065
  3. DOCETAXEL [Suspect]
     Route: 065

REACTIONS (2)
  - EMPYEMA [None]
  - RESPIRATORY DISORDER [None]
